FAERS Safety Report 5343490-2 (Version None)
Quarter: 2007Q2

REPORT INFORMATION
  Report Type: 
  Country: None (occurrence: None)
  Receive Date: 20070604
  Receipt Date: 20070522
  Transmission Date: 20071010
  Serious: Yes (Hospitalization)
  Sender: FDA-Public Use
  Company Number: FR-JNJFOC-20070501421

PATIENT
  Age: 39 Year
  Sex: Female

DRUGS (6)
  1. REMICADE [Suspect]
     Route: 042
  2. REMICADE [Suspect]
     Dosage: MAINTENANCE DOSE
     Route: 042
  3. REMICADE [Suspect]
     Indication: EOSINOPHILIC FASCIITIS
     Dosage: INDUCTION INFUSIONS AT WEEK 0, 2, AND 6
     Route: 042
  4. PREDNISONE TAB [Concomitant]
  5. PREDNISONE TAB [Concomitant]
  6. PREDNISONE TAB [Concomitant]
     Indication: EOSINOPHILIC FASCIITIS

REACTIONS (1)
  - PSORIASIS [None]
